FAERS Safety Report 4973010-3 (Version None)
Quarter: 2006Q2

REPORT INFORMATION
  Report Type: 
  Country: None (occurrence: None)
  Receive Date: 20060414
  Receipt Date: 20060406
  Transmission Date: 20061013
  Serious: Yes (Hospitalization)
  Sender: FDA-Public Use
  Company Number: FR-GLAXOSMITHKLINE-B0420133A

PATIENT
  Age: 65 Year
  Sex: Male

DRUGS (23)
  1. SERETIDE [Suspect]
     Indication: BRONCHITIS CHRONIC
     Dosage: 2PUFF TWICE PER DAY
     Route: 055
     Dates: start: 20050803, end: 20051228
  2. NORVIR [Suspect]
     Indication: HIV INFECTION
     Dosage: 100MG PER DAY
     Route: 048
     Dates: start: 20050719
  3. EPIVIR [Concomitant]
     Indication: HIV INFECTION
     Route: 048
     Dates: start: 20050101
  4. SKENAN [Concomitant]
     Route: 048
     Dates: start: 20050101
  5. REYATAZ [Concomitant]
     Indication: HIV INFECTION
     Route: 048
     Dates: start: 20050101
  6. BRICANYL [Concomitant]
     Route: 065
  7. ATROVENT [Concomitant]
     Route: 055
  8. ELISOR [Concomitant]
     Route: 048
  9. LASILIX [Concomitant]
     Route: 065
  10. TRIATEC [Concomitant]
     Route: 048
  11. CARDENSIEL [Concomitant]
     Route: 048
  12. ASPEGIC 1000 [Concomitant]
     Route: 065
  13. BACTRIM [Concomitant]
     Route: 065
  14. TRIFLUCAN [Concomitant]
     Route: 065
  15. RIMIFON [Concomitant]
     Route: 065
  16. MYOLASTAN [Concomitant]
     Route: 048
  17. IMOVANE [Concomitant]
     Route: 048
  18. SPASFON [Concomitant]
     Route: 065
  19. SEVREDOL [Concomitant]
     Route: 048
  20. VIDEX [Concomitant]
     Indication: HIV INFECTION
     Route: 048
     Dates: start: 20050101
  21. MICROLAX [Concomitant]
     Route: 054
  22. FORLAX [Concomitant]
     Route: 048
  23. CACIT D3 [Concomitant]
     Route: 048

REACTIONS (14)
  - ADRENAL INSUFFICIENCY [None]
  - AMYOTROPHY [None]
  - ASTHENIA [None]
  - BLOOD CORTISOL DECREASED [None]
  - CUSHING'S SYNDROME [None]
  - CUSHINGOID [None]
  - DRUG INTERACTION [None]
  - HYPERCORTICOIDISM [None]
  - HYPOGONADISM [None]
  - HYPOREFLEXIA [None]
  - LIPOHYPERTROPHY [None]
  - MUSCULAR WEAKNESS [None]
  - OSTEOPOROSIS [None]
  - PRODUCTIVE COUGH [None]
